FAERS Safety Report 8863360 (Version 1)
Quarter: 2012Q4

REPORT INFORMATION
  Report Type: 
  Country: CN (occurrence: CN)
  Receive Date: 20121025
  Receipt Date: 20121025
  Transmission Date: 20130627
  Serious: Yes (Other)
  Sender: FDA-Public Use
  Company Number: CN-GLAXOSMITHKLINE-B0839969A

PATIENT
  Age: 24 Year
  Sex: Female
  Weight: 43 kg

DRUGS (1)
  1. SALMETEROL [Suspect]
     Indication: ASTHMA
     Dosage: 250MCG Twice per day
     Route: 055
     Dates: start: 20110505, end: 20110516

REACTIONS (2)
  - Leukoplakia oral [Recovered/Resolved]
  - Pharyngeal leukoplakia [None]
